FAERS Safety Report 6096921-7 (Version None)
Quarter: 2009Q1

REPORT INFORMATION
  Report Type: 
  Country: None (occurrence: None)
  Receive Date: 20090225
  Receipt Date: 20090219
  Transmission Date: 20090719
  Serious: Yes (Other)
  Sender: FDA-Public Use
  Company Number: 182935

PATIENT
  Age: 55 Year
  Sex: Male
  Weight: 90 kg

DRUGS (5)
  1. O-FOLIN (CALCIUM FOLINATE) [Suspect]
     Indication: METASTASES TO LIVER
  2. IRINOTECAN HCL [Suspect]
     Indication: METASTASES TO LIVER
  3. ONKOFLUOR (FLUOROURACIL) [Suspect]
     Indication: METASTASES TO LIVER
  4. (BEVACIZUMAB) [Suspect]
     Indication: METASTASES TO LIVER
  5. RED BLOOD CELLS [Concomitant]

REACTIONS (4)
  - ENCEPHALOPATHY [None]
  - HEPATIC FAILURE [None]
  - HEPATIC STEATOSIS [None]
  - HYPERBILIRUBINAEMIA [None]
